FAERS Safety Report 10215688 (Version 1)
Quarter: 2014Q2

REPORT INFORMATION
  Report Type: Spontaneous
  Country: JP (occurrence: None)
  Receive Date: 20140602
  Receipt Date: 20140602
  Transmission Date: 20141212
  Serious: Yes (Other)
  Sender: FDA-Public Use
  Company Number: SYM-2014-21259

PATIENT
  Age: 56 Year
  Sex: Male

DRUGS (1)
  1. HERBESSER R [Suspect]
     Indication: PRODUCT USED FOR UNKNOWN INDICATION
     Route: 048
     Dates: start: 201304, end: 201306

REACTIONS (1)
  - Drug-induced liver injury [None]
